FAERS Safety Report 17489339 (Version 1)
Quarter: 2020Q1

REPORT INFORMATION
  Report Type: Spontaneous
  Country: US (occurrence: US)
  Receive Date: 20200303
  Receipt Date: 20200303
  Transmission Date: 20200409
  Serious: Yes (Other)
  Sender: FDA-Public Use
  Company Number: US-PFIZER INC-2019394697

PATIENT
  Age: 61 Year
  Sex: Female

DRUGS (1)
  1. XELJANZ XR [Suspect]
     Active Substance: TOFACITINIB CITRATE
     Dosage: 11 MG, UNK
     Dates: end: 20200105

REACTIONS (5)
  - Limb injury [Unknown]
  - Fatigue [Unknown]
  - Arthritis [Unknown]
  - Musculoskeletal discomfort [Unknown]
  - Skin ulcer [Unknown]

NARRATIVE: CASE EVENT DATE: 2020
